FAERS Safety Report 17432897 (Version 1)
Quarter: 2020Q1

REPORT INFORMATION
  Report Type: Report from Study
  Country: None (occurrence: TW)
  Receive Date: 20200219
  Receipt Date: 20200219
  Transmission Date: 20200409
  Serious: Yes (Death, Hospitalization)
  Sender: FDA-Public Use
  Company Number: TW-ABBVIE-20K-153-3282033-00

PATIENT
  Sex: Male

DRUGS (1)
  1. IBRUTINIB [Suspect]
     Active Substance: IBRUTINIB
     Indication: MANTLE CELL LYMPHOMA
     Route: 048
     Dates: start: 20171208, end: 20191120

REACTIONS (2)
  - White blood cell count decreased [Fatal]
  - Mantle cell lymphoma recurrent [Fatal]

NARRATIVE: CASE EVENT DATE: 2019
